FAERS Safety Report 9530826 (Version 1)
Quarter: 2013Q2

REPORT INFORMATION
  Report Type: Spontaneous
  Country: US (occurrence: None)
  Receive Date: 20130418
  Receipt Date: 20130418
  Transmission Date: 20140414
  Serious: Yes (Other)
  Sender: FDA-Public Use
  Company Number: 0909USA03338

PATIENT
  Age: 4 Year
  Sex: Male
  Weight: 19.1 kg

DRUGS (1)
  1. SINGULAIR (MONTELUKAST SODIUM) TABLET [Suspect]
     Route: 048
     Dates: start: 20050410, end: 20081101

REACTIONS (5)
  - Insomnia [None]
  - Abnormal dreams [None]
  - Aggression [None]
  - Agitation [None]
  - Epistaxis [None]
